FAERS Safety Report 24097589 (Version 3)
Quarter: 2024Q3

REPORT INFORMATION
  Report Type: Report from Study
  Country: US (occurrence: US)
  Receive Date: 20240716
  Receipt Date: 20240722
  Transmission Date: 20241017
  Serious: Yes (Hospitalization)
  Sender: ROCHE
  Company Number: US-ROCHE-10000019609

PATIENT
  Age: 36 Year
  Sex: Female
  Weight: 90.71 kg

DRUGS (3)
  1. OCRELIZUMAB [Suspect]
     Active Substance: OCRELIZUMAB
     Indication: Relapsing-remitting multiple sclerosis
     Dosage: TWICE A YEAR
     Route: 042
     Dates: start: 202207
  2. CETIRIZINE [Concomitant]
     Active Substance: CETIRIZINE HYDROCHLORIDE
     Route: 048
     Dates: start: 20240528
  3. TERBINAFINE HYDROCHLORIDE [Concomitant]
     Active Substance: TERBINAFINE HYDROCHLORIDE
     Indication: Rash
     Route: 058
     Dates: start: 20240528

REACTIONS (9)
  - Arthropod bite [Unknown]
  - Rash [Unknown]
  - Hypersensitivity [Unknown]
  - Contusion [Unknown]
  - Secretion discharge [Unknown]
  - Thermal burn [Unknown]
  - Paraesthesia [Unknown]
  - Pain [Unknown]
  - Sneezing [Unknown]

NARRATIVE: CASE EVENT DATE: 20220701
